FAERS Safety Report 9669570 (Version 1)
Quarter: 2013Q4

REPORT INFORMATION
  Report Type: Spontaneous
  Country: US (occurrence: US)
  Receive Date: 20131105
  Receipt Date: 20131105
  Transmission Date: 20140711
  Serious: Yes (Other)
  Sender: FDA-Public Use
  Company Number: PHHY2013US120646

PATIENT
  Age: 77 Year
  Sex: Male

DRUGS (3)
  1. LISINOPRIL [Suspect]
     Dosage: 20 MG, PER DAY
  2. FLUOROURACIL [Interacting]
     Indication: ACTINIC KERATOSIS
  3. METFORMIN [Concomitant]

REACTIONS (8)
  - Anaphylactic reaction [Recovered/Resolved]
  - Local swelling [Recovered/Resolved]
  - Presyncope [Recovered/Resolved]
  - Pruritus [Recovered/Resolved]
  - Lip oedema [Recovered/Resolved]
  - Dysphonia [Recovered/Resolved]
  - Angioedema [Recovered/Resolved]
  - Drug interaction [Unknown]
